FAERS Safety Report 5272545-6 (Version None)
Quarter: 2007Q1

REPORT INFORMATION
  Report Type: 
  Country: None (occurrence: None)
  Receive Date: 20070322
  Receipt Date: 20061207
  Transmission Date: 20070707
  Serious: Yes (Other)
  Sender: FDA-Public Use
  Company Number: US-BRISTOL-MYERS SQUIBB COMPANY-13605019

PATIENT
  Sex: Male

DRUGS (1)
  1. KENALOG [Suspect]
     Indication: RETINAL OEDEMA
     Route: 031
     Dates: start: 20060501, end: 20060601

REACTIONS (1)
  - INTRAOCULAR PRESSURE INCREASED [None]
